FAERS Safety Report 7553810 (Version 2)
Quarter: 2012Q4

REPORT INFORMATION
  Report Type: 
  Country: CA (occurrence: CA)
  Receive Date: 20100825
  Receipt Date: 20121123
  Transmission Date: 20130627
  Serious: Yes (Other)
  Sender: FDA-Public Use
  Company Number: PHHY2010CA53220

PATIENT
  Sex: Female

DRUGS (3)
  1. ACLASTA [Suspect]
     Indication: OSTEOPOROSIS
     Dosage: UNK
     Route: 042
     Dates: start: 20091211
  2. ACLASTA [Suspect]
     Dosage: UNK
     Route: 042
     Dates: start: 20101214
  3. ACLASTA [Suspect]
     Dosage: UNK
     Route: 042
     Dates: start: 20120103

REACTIONS (1)
  - Rotator cuff syndrome [Unknown]
